FAERS Safety Report 12897026 (Version 1)
Quarter: 2016Q4

REPORT INFORMATION
  Report Type: Spontaneous
  Country: US (occurrence: US)
  Receive Date: 20161028
  Receipt Date: 20161028
  Transmission Date: 20170207
  Serious: Yes (Disabling)
  Sender: FDA-Public Use
  Company Number: None

PATIENT
  Age: 33 Year
  Sex: Female

DRUGS (4)
  1. MORPHINE [Suspect]
     Active Substance: MORPHINE
     Indication: PAIN
     Dosage: ?          OTHER FREQUENCY:ONCE;?
     Route: 008
     Dates: start: 20160818, end: 20160818
  2. EPIDURAL [Concomitant]
  3. FENTANYL. [Concomitant]
     Active Substance: FENTANYL
  4. BUPIVACAINE. [Suspect]
     Active Substance: BUPIVACAINE
     Indication: PAIN
     Dosage: ?          OTHER FREQUENCY:ONCE;?
     Route: 008
     Dates: start: 20160818, end: 20160818

REACTIONS (2)
  - Paralysis [None]
  - Urinary incontinence [None]

NARRATIVE: CASE EVENT DATE: 20160818
